FAERS Safety Report 24022838 (Version 2)
Quarter: 2024Q3

REPORT INFORMATION
  Report Type: Report from Study
  Country: KR (occurrence: KR)
  Receive Date: 20240627
  Receipt Date: 20240710
  Transmission Date: 20241016
  Serious: No
  Sender: ROCHE
  Company Number: KR-ROCHE-3535613

PATIENT
  Age: 80 Year
  Sex: Male

DRUGS (1)
  1. VABYSMO [Suspect]
     Active Substance: FARICIMAB\FARICIMAB-SVOA
     Indication: Diabetic retinal oedema
     Dosage: SECOND VABYSMO INJECTION (RT.) ON 20/MAR/2024.
     Route: 065
     Dates: start: 20240124

REACTIONS (2)
  - Off label use [Unknown]
  - No adverse event [Unknown]
